FAERS Safety Report 18071017 (Version 3)
Quarter: 2020Q3

REPORT INFORMATION
  Report Type: Other
  Country: IT (occurrence: IT)
  Receive Date: 20200727
  Receipt Date: 20200910
  Transmission Date: 20201103
  Serious: Yes (Death, Hospitalization)
  Sender: FDA-Public Use
  Company Number: IT-ROCHE-2646754

PATIENT
  Age: 75 Year
  Sex: Female

DRUGS (1)
  1. ACTILYSE [Suspect]
     Active Substance: ALTEPLASE
     Indication: ISCHAEMIC STROKE
     Route: 042

REACTIONS (4)
  - Respiratory failure [Fatal]
  - Cerebral ischaemia [Unknown]
  - Haemorrhagic transformation stroke [Unknown]
  - Atrial fibrillation [Unknown]
